FAERS Safety Report 21514908 (Version 1)
Quarter: 2022Q4

REPORT INFORMATION
  Report Type: Spontaneous
  Country: US (occurrence: None)
  Receive Date: 20221027
  Receipt Date: 20221027
  Transmission Date: 20230112
  Serious: No
  Sender: FDA-Public Use
  Company Number: None

PATIENT
  Age: 61 Year
  Sex: Female
  Weight: 56.25 kg

DRUGS (5)
  1. KISQALI [Suspect]
     Active Substance: RIBOCICLIB
     Indication: Breast cancer female
     Dosage: OTHER FREQUENCY : 3W, 1W OFF;?
     Route: 048
  2. CALCIUM PYRUVATE [Concomitant]
  3. GABAPENTIN [Concomitant]
  4. MULTIVITAMIN ADULTS [Concomitant]
  5. VITAMIN D3 [Concomitant]

REACTIONS (2)
  - Therapy interrupted [None]
  - Unevaluable event [None]
